FAERS Safety Report 12266961 (Version 3)
Quarter: 2016Q4

REPORT INFORMATION
  Report Type: Spontaneous
  Country: US (occurrence: US)
  Receive Date: 20160414
  Receipt Date: 20161220
  Transmission Date: 20170207
  Serious: No
  Sender: FDA-Public Use
  Company Number: US-PFIZER INC-2016167183

PATIENT
  Age: 65 Year
  Sex: Female
  Weight: 65.77 kg

DRUGS (8)
  1. LYRICA [Suspect]
     Active Substance: PREGABALIN
     Indication: FIBROMYALGIA
     Dosage: 150 MG, SOMETIMES SHE TOOK JUST ONCE A DAY AND SOMETIMES TWICE A DAY
     Route: 048
  2. LYRICA [Suspect]
     Active Substance: PREGABALIN
     Indication: PAIN IN EXTREMITY
  3. LYRICA [Suspect]
     Active Substance: PREGABALIN
     Indication: THERMAL BURN
     Dosage: 150 MG, 2X/DAY
     Route: 048
     Dates: start: 200603
  4. CELEBREX [Concomitant]
     Active Substance: CELECOXIB
     Dosage: 200 MG, 2X/DAY
     Route: 048
  5. LYRICA [Suspect]
     Active Substance: PREGABALIN
     Indication: PARAESTHESIA
  6. OXYCODONE [Concomitant]
     Active Substance: OXYCODONE
     Dosage: UNK UNK, AS NEEDED(1 TO2 TABLET(S) PO Q 6-8H PRN)
     Route: 048
     Dates: start: 20161114, end: 20161213
  7. PRISTIQ EXTENDED-RELEASE [Concomitant]
     Active Substance: DESVENLAFAXINE SUCCINATE
     Dosage: 100 MG, DAILY
     Route: 048
     Dates: start: 201603
  8. LYRICA [Suspect]
     Active Substance: PREGABALIN
     Indication: NECK PAIN

REACTIONS (16)
  - Musculoskeletal discomfort [Not Recovered/Not Resolved]
  - Myalgia [Unknown]
  - Musculoskeletal pain [Unknown]
  - Paraesthesia [Recovered/Resolved]
  - Asthenia [Unknown]
  - Radiculopathy [Unknown]
  - Urinary hesitation [Unknown]
  - Feeling hot [Recovering/Resolving]
  - Back pain [Recovered/Resolved]
  - Intentional product use issue [Not Recovered/Not Resolved]
  - Burning sensation [Recovered/Resolved]
  - Insomnia [Unknown]
  - Muscle spasms [Unknown]
  - Osteoarthritis [Unknown]
  - Arthralgia [Unknown]
  - Pain [Recovering/Resolving]

NARRATIVE: CASE EVENT DATE: 201603
